FAERS Safety Report 19954256 (Version 1)
Quarter: 2021Q4

REPORT INFORMATION
  Report Type: Report from Study
  Country: NL (occurrence: NL)
  Receive Date: 20211013
  Receipt Date: 20211013
  Transmission Date: 20220303
  Serious: Yes (Hospitalization, Other)
  Sender: FDA-Public Use
  Company Number: NL-ROCHE-2849478

PATIENT
  Age: 75 Year
  Sex: Female

DRUGS (4)
  1. BEVACIZUMAB [Suspect]
     Active Substance: BEVACIZUMAB
     Indication: Non-small cell lung cancer
     Dosage: 1080 MILLIGRAM (DATE OF LAST DOSE OF BEVACIZUMAB : 02/JUN/2021)
     Route: 042
     Dates: start: 20210602
  2. PACLITAXEL [Suspect]
     Active Substance: PACLITAXEL
     Indication: Non-small cell lung cancer
     Dosage: 361.8 MILLIGRAM (DATE OF LAST DOSE OF PACLITAXEL : 02/JUN/2021)
     Route: 042
     Dates: start: 20210602
  3. CARBOPLATIN [Suspect]
     Active Substance: CARBOPLATIN
     Indication: Non-small cell lung cancer
     Dosage: 499.2 MILLIGRAM (DATE OF LAST DOSE OF CARBOPLATIN : 02/JUN/2021)
     Route: 042
     Dates: start: 20210602
  4. ATEZOLIZUMAB [Suspect]
     Active Substance: ATEZOLIZUMAB
     Indication: Non-small cell lung cancer
     Dosage: 1200 MILLIGRAM
     Route: 042
     Dates: start: 20210602

REACTIONS (2)
  - Cerebrovascular accident [Not Recovered/Not Resolved]
  - Thrombotic thrombocytopenic purpura [Not Recovered/Not Resolved]

NARRATIVE: CASE EVENT DATE: 20210611
